FAERS Safety Report 8455622-8 (Version None)
Quarter: 2012Q2

REPORT INFORMATION
  Report Type: 
  Country: None (occurrence: None)
  Receive Date: 20120614
  Receipt Date: 20111201
  Transmission Date: 20120825
  Serious: No
  Sender: FDA-Public Use
  Company Number: FDB-2011-060

PATIENT
  Age: 48 Year
  Sex: Female

DRUGS (3)
  1. TECHNETIUM 99M SULFUR COLLOID SOLUTION/INJ [Suspect]
     Indication: LYMPHADENOPATHY
     Dosage: 0.25MCI, SUBCUT, (4X)
     Route: 058
     Dates: start: 20111201
  2. TOPAMAX [Concomitant]
  3. LACTIMAL [Concomitant]

REACTIONS (2)
  - DISORIENTATION [None]
  - CONVULSION [None]
